FAERS Safety Report 7291766-4 (Version None)
Quarter: 2011Q1

REPORT INFORMATION
  Report Type: 
  Country: None (occurrence: None)
  Receive Date: 20110214
  Receipt Date: 20110208
  Transmission Date: 20110831
  Serious: Yes (Other)
  Sender: FDA-Public Use
  Company Number: DE-PFIZER INC-2011016990

PATIENT
  Age: 47 Year
  Sex: Female

DRUGS (1)
  1. CYKLOKAPRON [Suspect]

REACTIONS (4)
  - ACCIDENTAL EXPOSURE [None]
  - EYE IRRITATION [None]
  - PHOTOPHOBIA [None]
  - CHEMICAL BURNS OF EYE [None]
